FAERS Safety Report 7357133-X (Version None)
Quarter: 2011Q1

REPORT INFORMATION
  Report Type: 
  Country: None (occurrence: None)
  Receive Date: 20110308
  Receipt Date: 20110222
  Transmission Date: 20110831
  Serious: Yes (Hospitalization)
  Sender: FDA-Public Use
  Company Number: 010284

PATIENT
  Sex: Female

DRUGS (12)
  1. METHOTREXATE [Concomitant]
  2. OLMESARTAN MEDOXOMIL [Concomitant]
  3. BISOPROLOL FUMARATE [Concomitant]
  4. EPINASTINE HYDROCHLORIDE [Concomitant]
  5. AMLODIPINE BESILATE [Concomitant]
  6. FOLIC ACID [Concomitant]
  7. EZETIMIBE [Concomitant]
  8. KETOPROFEN [Concomitant]
  9. LOXOPROFEN SODIUM [Concomitant]
  10. MEDROL [Concomitant]
  11. CERTOLIZUMAB PEGOL (CERTOLIZUMAB PEGOL) [Suspect]
     Indication: RHEUMATOID ARTHRITIS
     Dosage: SUBCUTANEOUS
     Route: 058
     Dates: start: 20091228, end: 20100421
  12. ASPIRIN [Concomitant]

REACTIONS (6)
  - MENINGITIS NONINFECTIVE [None]
  - HYPOAESTHESIA [None]
  - GASTRITIS [None]
  - BRAIN OEDEMA [None]
  - TRANSIENT ISCHAEMIC ATTACK [None]
  - POSTERIOR REVERSIBLE ENCEPHALOPATHY SYNDROME [None]
